FAERS Safety Report 12055964 (Version 1)
Quarter: 2016Q1

REPORT INFORMATION
  Report Type: Spontaneous
  Country: US (occurrence: US)
  Receive Date: 20160209
  Receipt Date: 20160209
  Transmission Date: 20160526
  Serious: Yes (Other)
  Sender: FDA-Public Use
  Company Number: US-BAYER-2016-023438

PATIENT
  Age: 61 Year
  Sex: Male
  Weight: 81.63 kg

DRUGS (3)
  1. ZYRTEC [Concomitant]
     Active Substance: CETIRIZINE HYDROCHLORIDE
     Dosage: UNK
  2. AFRIN ORIGINAL [Suspect]
     Active Substance: OXYMETAZOLINE HYDROCHLORIDE
     Indication: SINUS DISORDER
     Dosage: 1 DF, HS (EVERY NIGHT)
     Route: 045
     Dates: start: 2014
  3. AFRIN ORIGINAL [Suspect]
     Active Substance: OXYMETAZOLINE HYDROCHLORIDE
     Indication: SINUS CONGESTION
     Dosage: 1 DF, QD
     Route: 045

REACTIONS (9)
  - Eye irritation [None]
  - Product use issue [None]
  - Sneezing [None]
  - Product use issue [None]
  - Hypersensitivity [None]
  - Eye pruritus [None]
  - Sinusitis [None]
  - Paranasal sinus hypersecretion [None]
  - Sinus disorder [None]

NARRATIVE: CASE EVENT DATE: 2014
